FAERS Safety Report 25259230 (Version 1)
Quarter: 2025Q2

REPORT INFORMATION
  Report Type: Spontaneous
  Country: US (occurrence: US)
  Receive Date: 20250501
  Receipt Date: 20250501
  Transmission Date: 20250717
  Serious: Yes (Hospitalization)
  Sender: ROCHE
  Company Number: US-ROCHE-10000268893

PATIENT
  Age: 72 Year
  Sex: Female
  Weight: 47.6 kg

DRUGS (5)
  1. RITUXAN [Suspect]
     Active Substance: RITUXIMAB
     Indication: Vasculitis
     Route: 042
     Dates: start: 202210
  2. RITUXAN [Suspect]
     Active Substance: RITUXIMAB
     Dosage: STARTED 6 MONTHS AFTER THE ABOVE INFUSIONS. AND MISSED JAN-2025?INFUSION.
     Route: 042
     Dates: start: 2024
  3. RITUXAN [Suspect]
     Active Substance: RITUXIMAB
     Dosage: RECEIVED 2ND HALF DOSE ON 12-MAR-2025 AND WILL CONTINUE AT 1?INFUSION EVERY 6 MONTHS
     Route: 042
     Dates: start: 20250226
  4. HYDROXYCHLOROQUINE [Concomitant]
     Active Substance: HYDROXYCHLOROQUINE
     Indication: Rheumatoid arthritis
     Dosage: STARTED ABOUT 1 YEAR AGO.
     Route: 048
  5. OMEPRAZOLE [Concomitant]
     Active Substance: OMEPRAZOLE
     Indication: Gastritis
     Route: 048

REACTIONS (6)
  - Pyrexia [Not Recovered/Not Resolved]
  - Chills [Not Recovered/Not Resolved]
  - Legionella infection [Not Recovered/Not Resolved]
  - Fatigue [Not Recovered/Not Resolved]
  - Asthenia [Not Recovered/Not Resolved]
  - Off label use [Unknown]

NARRATIVE: CASE EVENT DATE: 20250301
